FAERS Safety Report 4854579-6 (Version None)
Quarter: 2005Q4

REPORT INFORMATION
  Report Type: 
  Country: None (occurrence: None)
  Receive Date: 20051213
  Receipt Date: 20051108
  Transmission Date: 20060501
  Serious: Yes (Death)
  Sender: FDA-Public Use
  Company Number: MK200512-0095-1

PATIENT
  Age: 39 Year

DRUGS (3)
  1. FLUOXETINE [Suspect]
     Dosage: PO
     Route: 048
     Dates: end: 20040101
  2. BENZTROPINE MESYLATE [Suspect]
  3. DOXEPIN HCL [Suspect]

REACTIONS (2)
  - COMPLETED SUICIDE [None]
  - MULTIPLE DRUG OVERDOSE INTENTIONAL [None]
